FAERS Safety Report 5478709-0 (Version None)
Quarter: 2007Q4

REPORT INFORMATION
  Report Type: 
  Country: None (occurrence: None)
  Receive Date: 20071005
  Receipt Date: 20071001
  Transmission Date: 20080405
  Serious: Yes (Other)
  Sender: FDA-Public Use
  Company Number: DK-ROXANE LABORATORIES, INC-2007-DE-05851GD

PATIENT

DRUGS (10)
  1. MORPHINE [Suspect]
     Indication: PROCEDURAL PAIN
     Route: 008
  2. ROPIVACAINE [Suspect]
     Indication: PROCEDURAL PAIN
     Route: 008
  3. BUPIVACAINE [Concomitant]
     Indication: SPINAL ANAESTHESIA
  4. DICLOXACILLIN [Concomitant]
     Route: 042
  5. TRANEXAMIC ACID [Concomitant]
     Indication: PROPHYLAXIS
     Dosage: 20 MG/KG
  6. TRANEXAMIC ACID [Concomitant]
     Indication: HAEMORRHAGE
  7. ARIXTRA [Concomitant]
     Indication: THROMBOSIS PROPHYLAXIS
     Route: 058
  8. LIDOCAINE AND EPINEPHRINE [Concomitant]
     Indication: EPIDURAL TEST DOSE
     Dosage: 60 MG LIDOCAINE
     Route: 008
  9. PARACETAMOL [Concomitant]
     Route: 048
  10. PERILAX [Concomitant]
     Indication: LAXATIVE SUPPORTIVE CARE

REACTIONS (1)
  - MOTOR DYSFUNCTION [None]
